FAERS Safety Report 10502189 (Version 3)
Quarter: 2015Q1

REPORT INFORMATION
  Report Type: Spontaneous
  Country: US (occurrence: US)
  Receive Date: 20141007
  Receipt Date: 20150105
  Transmission Date: 20150720
  Serious: No
  Sender: FDA-Public Use
  Company Number: US-PFIZER INC-2014273981

PATIENT
  Age: 49 Year
  Sex: Female

DRUGS (3)
  1. PRAVASTATIN [Concomitant]
     Active Substance: PRAVASTATIN\PRAVASTATIN SODIUM
     Dosage: UNK
     Dates: start: 201207
  2. AROMASIN [Suspect]
     Active Substance: EXEMESTANE
     Indication: BREAST CANCER
     Dosage: 25 MG, 1X/DAY
     Dates: start: 201310, end: 201402
  3. LISINOPRIL / HYDROCHLOROTHIAZIDE [Concomitant]
     Dosage: UNK
     Dates: start: 201212

REACTIONS (1)
  - Nasopharyngitis [Recovered/Resolved]
